FAERS Safety Report 9082527 (Version 1)
Quarter: 2013Q1

REPORT INFORMATION
  Report Type: Report from Study
  Country: US (occurrence: US)
  Receive Date: 20130130
  Receipt Date: 20130130
  Transmission Date: 20140127
  Serious: No
  Sender: FDA-Public Use
  Company Number: US-ABBOTT-12P-163-0953792-00

PATIENT
  Age: 52 Year
  Sex: 0

DRUGS (2)
  1. HUMIRA 40 MG/0.8 ML PEN [Suspect]
     Indication: PSORIASIS
     Dosage: ONCE
     Dates: start: 20120621, end: 20120621
  2. HUMIRA 40 MG/0.8 ML PEN [Suspect]
     Dosage: ONCE
     Dates: start: 20120629, end: 20120629

REACTIONS (1)
  - Injection site erythema [Not Recovered/Not Resolved]
